FAERS Safety Report 16884905 (Version 1)
Quarter: 2019Q4

REPORT INFORMATION
  Report Type: Spontaneous
  Country: US (occurrence: US)
  Receive Date: 20191004
  Receipt Date: 20191004
  Transmission Date: 20200122
  Serious: No
  Sender: FDA-Public Use
  Company Number: US-AVEDRO-AVE-2019-0282-AE

PATIENT
  Age: 34 Year
  Sex: Female

DRUGS (2)
  1. AVEDRO CROSS-LINKING PRODUCT(S), UNSPECIFIED [Suspect]
     Active Substance: RIBOFLAVIN 5^-PHOSPHATE SODIUM
     Indication: KERATOCONUS
     Route: 047
     Dates: start: 201908, end: 201908
  2. BANDAGE CONTACT LENS [Suspect]
     Active Substance: DEVICE
     Indication: PRODUCT USED FOR UNKNOWN INDICATION
     Route: 047
     Dates: start: 201908, end: 2019

REACTIONS (8)
  - Headache [Unknown]
  - Eye pain [Unknown]
  - Migraine [Unknown]
  - Panic attack [Unknown]
  - Dry eye [Recovering/Resolving]
  - Eye irritation [Recovering/Resolving]
  - Vision blurred [Unknown]
  - Strabismus [Unknown]

NARRATIVE: CASE EVENT DATE: 201908
